FAERS Safety Report 4277650-9 (Version None)
Quarter: 2004Q1

REPORT INFORMATION
  Report Type: 
  Country: None (occurrence: None)
  Receive Date: 20040121
  Receipt Date: 20040115
  Transmission Date: 20041129
  Serious: Yes (Hospitalization)
  Sender: FDA-Public Use
  Company Number: US-JNJFOC-20030902505

PATIENT
  Age: 68 Year
  Sex: Female

DRUGS (1)
  1. DURAGESIC [Suspect]
     Indication: PAIN
     Dosage: 75 UG/HR, 1 IN 72 HOUR, TRANSDERMAL
     Route: 062
     Dates: start: 20020401, end: 20030905

REACTIONS (4)
  - APPLICATION SITE DERMATITIS [None]
  - DIARRHOEA [None]
  - HOT FLUSH [None]
  - TREMOR [None]
